FAERS Safety Report 9736483 (Version 2)
Quarter: 2014Q1

REPORT INFORMATION
  Report Type: Spontaneous
  Country: GB (occurrence: GB)
  Receive Date: 20131206
  Receipt Date: 20140203
  Transmission Date: 20141002
  Serious: Yes (Death)
  Sender: FDA-Public Use
  Company Number: GB-B.I. PHARMACEUTICALS,INC./RIDGEFIELD-2013-BI-40766UK

PATIENT
  Age: 98 Year
  Sex: Female
  Weight: 43.9 kg

DRUGS (6)
  1. PRADAXA [Suspect]
     Indication: CEREBROVASCULAR ACCIDENT PROPHYLAXIS
     Dosage: 220 MG
     Route: 048
  2. PRADAXA [Suspect]
     Indication: ATRIAL FIBRILLATION
  3. CLOPIDOGREL [Concomitant]
  4. LEVOTHYROXINE [Concomitant]
     Dosage: 75 MCG
     Route: 048
  5. ZOPICLONE [Concomitant]
     Dosage: 3.75 MG
     Route: 048
  6. MACROGOL [Concomitant]
     Dosage: 2 ANZ

REACTIONS (8)
  - Rectal haemorrhage [Fatal]
  - Rectal haemorrhage [Fatal]
  - Constipation [Fatal]
  - Diverticulum [Fatal]
  - Cardiovascular disorder [Fatal]
  - Cerebrovascular accident [Fatal]
  - Atrial fibrillation [Fatal]
  - Dementia [Fatal]
